FAERS Safety Report 9897947 (Version 1)
Quarter: 2014Q1

REPORT INFORMATION
  Report Type: Spontaneous
  Country: US (occurrence: US)
  Receive Date: 20140214
  Receipt Date: 20140214
  Transmission Date: 20141002
  Serious: No
  Sender: FDA-Public Use
  Company Number: US-PFIZER INC-2014042107

PATIENT
  Age: 73 Year
  Sex: Female
  Weight: 104.31 kg

DRUGS (4)
  1. LYRICA [Suspect]
     Indication: DIABETIC NEUROPATHY
     Dosage: UNK
  2. LYRICA [Suspect]
     Dosage: 50 MG, 1X/DAY
     Dates: start: 201312
  3. LYRICA [Suspect]
     Dosage: 50 MG, 2X/DAY
     Dates: start: 201312
  4. METFORMIN [Concomitant]
     Indication: DIABETES MELLITUS
     Dosage: 500 MG, 2X/DAY

REACTIONS (2)
  - Weight increased [Not Recovered/Not Resolved]
  - Fluid retention [Not Recovered/Not Resolved]
